FAERS Safety Report 8072976-5 (Version None)
Quarter: 2011Q4

REPORT INFORMATION
  Report Type: 
  Country: None (occurrence: None)
  Receive Date: 20111221
  Receipt Date: 20110829
  Transmission Date: 20120403
  Serious: Yes (Hospitalization)
  Sender: FDA-Public Use
  Company Number: PHEH2011US02859

PATIENT
  Age: 69 Year
  Sex: Male
  Weight: 69.4 kg

DRUGS (1)
  1. EXJADE [Suspect]
     Indication: IRON METABOLISM DISORDER
     Dosage: 750 MG, DAILY, ORAL
     Route: 048
     Dates: start: 20101222, end: 20110413

REACTIONS (1)
  - GASTRIC ULCER HAEMORRHAGE [None]
